FAERS Safety Report 6939606-4 (Version None)
Quarter: 2010Q3

REPORT INFORMATION
  Report Type: 
  Country: None (occurrence: None)
  Receive Date: 20100820
  Receipt Date: 20100805
  Transmission Date: 20110219
  Serious: Yes (Hospitalization)
  Sender: FDA-Public Use
  Company Number: 2010002540

PATIENT
  Age: 59 Year
  Sex: Male
  Weight: 87.1 kg

DRUGS (11)
  1. ERLOTINIB HYDROCHLORIDE [Suspect]
     Indication: LUNG ADENOCARCINOMA
     Dosage: (150 MG,QD),ORAL
     Route: 048
     Dates: start: 20080805, end: 20090105
  2. KOLANTYL (KOLANTYL) [Concomitant]
  3. SEVEN E-P [Concomitant]
  4. ALLOPURINOL [Concomitant]
  5. FAMOTIDINE [Concomitant]
  6. GLUCOBAY [Concomitant]
  7. PIOGLITAZONE HCL [Concomitant]
  8. ZOLPIDEM TARTATE (ZOLPIDEM TARTRATE) [Concomitant]
  9. MUCOSTA (REBAMIPIDE) [Concomitant]
  10. BIOFERMIN (BIOFERMIN) [Concomitant]
  11. LOXOPROFEN SODIUM (LOXOPROFEN SODIUM) [Concomitant]

REACTIONS (7)
  - HEPATIC FUNCTION ABNORMAL [None]
  - INTERSTITIAL LUNG DISEASE [None]
  - LUNG ADENOCARCINOMA METASTATIC [None]
  - MALIGNANT NEOPLASM PROGRESSION [None]
  - PLEURAL EFFUSION [None]
  - PYREXIA [None]
  - VIRAL INFECTION [None]
